FAERS Safety Report 24437668 (Version 7)
Quarter: 2025Q1

REPORT INFORMATION
  Report Type: Spontaneous
  Country: CA (occurrence: CA)
  Receive Date: 20241015
  Receipt Date: 20250317
  Transmission Date: 20250409
  Serious: Yes (Other)
  Sender: PFIZER
  Company Number: CA-PFIZER INC-202400174222

PATIENT
  Age: 78 Year
  Sex: Male

DRUGS (5)
  1. ABRILADA [Suspect]
     Active Substance: ADALIMUMAB-AFZB
     Indication: Rheumatoid arthritis
     Route: 042
     Dates: start: 20240222
  2. ABRILADA [Suspect]
     Active Substance: ADALIMUMAB-AFZB
     Route: 042
     Dates: start: 202501
  3. PERINDOPRIL ARGININE [Concomitant]
     Active Substance: PERINDOPRIL ARGININE
     Indication: Hypertension
     Dosage: 4 MG, DAILY
  4. ASPIRIN [Concomitant]
     Active Substance: ASPIRIN
     Indication: Coronary artery disease
     Dosage: 81 MG, DAILY
  5. AMLODIPINE [Concomitant]
     Active Substance: AMLODIPINE BESYLATE
     Indication: Hypertension
     Dosage: 5 MG, DAILY

REACTIONS (9)
  - Ascites [Unknown]
  - Hepatitis [Unknown]
  - Peripheral swelling [Not Recovered/Not Resolved]
  - Scrotal swelling [Unknown]
  - Dyspnoea exertional [Unknown]
  - Joint swelling [Unknown]
  - Swelling [Unknown]
  - Oedema peripheral [Recovering/Resolving]
  - Condition aggravated [Recovered/Resolved]

NARRATIVE: CASE EVENT DATE: 20240101
